FAERS Safety Report 6190672-6 (Version None)
Quarter: 2009Q2

REPORT INFORMATION
  Report Type: 
  Country: None (occurrence: None)
  Receive Date: 20090514
  Receipt Date: 20090513
  Transmission Date: 20091009
  Serious: Yes (Life-Threatening)
  Sender: FDA-Public Use
  Company Number: JP-B.I. PHARMACEUTICALS,INC./RIDGEFIELD-2009-BP-05983NB

PATIENT

DRUGS (1)
  1. MICARDIS [Suspect]
     Dosage: 40MG
     Route: 048

REACTIONS (1)
  - BLOOD PRESSURE DECREASED [None]
